FAERS Safety Report 4982846-4 (Version None)
Quarter: 2006Q2

REPORT INFORMATION
  Report Type: 
  Country: None (occurrence: None)
  Receive Date: 20060425
  Receipt Date: 20030502
  Transmission Date: 20061013
  Serious: Yes (Disabling)
  Sender: FDA-Public Use
  Company Number: AU-MERCK-0305AUS00009

PATIENT
  Age: 69 Year
  Sex: Male
  Weight: 74 kg

DRUGS (7)
  1. CALCIUM CARBONATE [Concomitant]
     Route: 065
     Dates: end: 20030401
  2. FOSAMAX [Suspect]
     Indication: OSTEOPOROSIS
     Route: 048
     Dates: start: 20030428, end: 20030428
  3. CALCIUM CARBONATE [Concomitant]
     Route: 065
     Dates: start: 20030401
  4. LISINOPRIL [Concomitant]
     Indication: HYPERTENSION
     Route: 065
  5. METFORMIN HYDROCHLORIDE [Concomitant]
     Indication: DIABETES MELLITUS NON-INSULIN-DEPENDENT
     Route: 065
  6. PYRIDOSTIGMINE BROMIDE [Concomitant]
     Indication: MYASTHENIA GRAVIS
     Route: 048
  7. PRAVASTATIN SODIUM [Concomitant]
     Indication: BLOOD CHOLESTEROL INCREASED
     Route: 065

REACTIONS (4)
  - BACK PAIN [None]
  - FATIGUE [None]
  - MUSCULAR WEAKNESS [None]
  - MYASTHENIA GRAVIS [None]
